FAERS Safety Report 11333831 (Version 1)
Quarter: 2015Q3

REPORT INFORMATION
  Report Type: Spontaneous
  Country: US (occurrence: US)
  Receive Date: 20150803
  Receipt Date: 20150803
  Transmission Date: 20151125
  Serious: Yes (Hospitalization)
  Sender: FDA-Public Use
  Company Number: US-ELI_LILLY_AND_COMPANY-US200605005504

PATIENT
  Sex: Male
  Weight: 90.7 kg

DRUGS (2)
  1. ZYPREXA [Suspect]
     Active Substance: OLANZAPINE
     Dosage: 15 MG, UNK
     Dates: start: 1999
  2. ZYPREXA [Suspect]
     Active Substance: OLANZAPINE
     Dosage: 30 MG, 2/D
     Dates: end: 2006

REACTIONS (4)
  - Hyperglycaemia [Unknown]
  - Diabetes mellitus [Not Recovered/Not Resolved]
  - Prescribed overdose [Unknown]
  - Glaucoma [Unknown]

NARRATIVE: CASE EVENT DATE: 1999
